FAERS Safety Report 7217116-7 (Version None)
Quarter: 2011Q1

REPORT INFORMATION
  Report Type: 
  Country: None (occurrence: None)
  Receive Date: 20110110
  Receipt Date: 20110104
  Transmission Date: 20110831
  Serious: Yes (Other)
  Sender: FDA-Public Use
  Company Number: US-JNJFOC-20100801701

PATIENT
  Sex: Male

DRUGS (2)
  1. LEVAQUIN [Suspect]
     Indication: SPERMATOZOA ABNORMAL
     Route: 048
  2. LEVAQUIN [Suspect]
     Indication: PROSTATITIS
     Route: 048

REACTIONS (4)
  - TENDON RUPTURE [None]
  - EPICONDYLITIS [None]
  - TENDONITIS [None]
  - MUSCLE STRAIN [None]
